FAERS Safety Report 5410344-2 (Version None)
Quarter: 2007Q3

REPORT INFORMATION
  Report Type: 
  Country: None (occurrence: None)
  Receive Date: 20070808
  Receipt Date: 20070725
  Transmission Date: 20080115
  Serious: Yes (Other)
  Sender: FDA-Public Use
  Company Number: PHBS2007JP11587

PATIENT
  Age: 64 Year
  Sex: Male

DRUGS (5)
  1. VISUDYNE [Suspect]
     Indication: MACULAR DEGENERATION
     Dates: start: 20070306, end: 20070306
  2. NORVASC [Concomitant]
  3. MEVALOIN [Concomitant]
  4. KALLIKREIN [Concomitant]
  5. DEPAS [Concomitant]

REACTIONS (1)
  - ARRHYTHMIA [None]
